FAERS Safety Report 7707549-4 (Version None)
Quarter: 2011Q3

REPORT INFORMATION
  Report Type: 
  Country: None (occurrence: None)
  Receive Date: 20110824
  Receipt Date: 20110817
  Transmission Date: 20111222
  Serious: Yes (Other)
  Sender: FDA-Public Use
  Company Number: US-NOVOPROD-333825

PATIENT
  Sex: Female
  Weight: 47 kg

DRUGS (3)
  1. LEVEMIR [Suspect]
     Indication: TYPE 2 DIABETES MELLITUS
     Dosage: 15 U, QD
     Route: 058
     Dates: start: 20110301, end: 20110710
  2. LIPITOR [Concomitant]
     Indication: BLOOD CHOLESTEROL INCREASED
     Dosage: UNK
  3. LEVEMIR [Suspect]
     Dosage: UNK
     Route: 058
     Dates: end: 20110710

REACTIONS (2)
  - HYPERSENSITIVITY [None]
  - DEHYDRATION [None]
